FAERS Safety Report 10781263 (Version 4)
Quarter: 2015Q1

REPORT INFORMATION
  Report Type: Spontaneous
  Country: JP (occurrence: JP)
  Receive Date: 20150210
  Receipt Date: 20150314
  Transmission Date: 20150721
  Serious: Yes (Other)
  Sender: FDA-Public Use
  Company Number: JP-009507513-1502JPN003585

PATIENT
  Age: 73 Year
  Sex: Male
  Weight: 63 kg

DRUGS (8)
  1. CALBLOCK [Concomitant]
     Active Substance: AZELNIDIPINE
     Dosage: 16 MG, UNK (DIVIDED DOSE FREQUENCY UNKNOWN)
     Route: 065
     Dates: start: 20130119
  2. GASMOTIN [Concomitant]
     Active Substance: MOSAPRIDE CITRATE
     Dosage: 3 DOSAGE FORM, UNK (DIVIDED DOSE FREQUENCY UNKNOWN)
     Route: 048
     Dates: start: 20130119
  3. JANUVIA [Suspect]
     Active Substance: SITAGLIPTIN PHOSPHATE
     Dosage: 50 MG, QD (DIVIDED DOSE FREQUENCY UNKNOWN)
     Route: 048
  4. SELBEX [Concomitant]
     Active Substance: TEPRENONE
     Dosage: 1.5 G, UNK (DIVIDED DOSE FREQUENCY UNKNOWN)
     Route: 065
     Dates: start: 20130119
  5. MAGMITT [Concomitant]
     Active Substance: MAGNESIUM OXIDE
     Dosage: 4 DOSAGE FORM, QD (DIVIDED DOSE FREQUENCY UNKNOWN)
     Route: 065
  6. JANUVIA [Suspect]
     Active Substance: SITAGLIPTIN PHOSPHATE
     Dosage: 100 MG, DIVIDED DOSE FREQUENCY UNKNOWN.
     Route: 048
  7. TAKEPRON [Concomitant]
     Active Substance: LANSOPRAZOLE
     Dosage: 15 MG, UNK (DIVIDED DOSE FREQUENCY UNKNOWN)
     Route: 065
     Dates: start: 20130119
  8. JANUVIA [Suspect]
     Active Substance: SITAGLIPTIN PHOSPHATE
     Dosage: 50 MG, DIVIDED DOSE FREQUENCY UNKNOWN
     Route: 048

REACTIONS (3)
  - Pyrexia [Recovered/Resolved]
  - Seizure [Recovered/Resolved]
  - Tremor [Recovered/Resolved]

NARRATIVE: CASE EVENT DATE: 20150125
